FAERS Safety Report 8221725-6 (Version None)
Quarter: 2012Q1

REPORT INFORMATION
  Report Type: 
  Country: None (occurrence: None)
  Receive Date: 20120320
  Receipt Date: 20120312
  Transmission Date: 20120608
  Serious: Yes (Hospitalization, Other)
  Sender: FDA-Public Use
  Company Number: US-BAYER-2011-060914

PATIENT
  Age: 27 Year
  Sex: Female
  Weight: 99.773 kg

DRUGS (4)
  1. YASMIN [Suspect]
     Indication: CONTRACEPTION
     Dosage: UNK
     Dates: start: 20061005, end: 20081220
  2. CLINDAMYCIN [Concomitant]
     Dosage: 300 MG, UNK
     Dates: start: 20090427
  3. YAZ [Suspect]
     Indication: CONTRACEPTION
     Dosage: UNK
     Dates: start: 20090114, end: 20090716
  4. IBUPROFEN (ADVIL) [Concomitant]
     Dosage: UNK UNK, PRN

REACTIONS (15)
  - EMOTIONAL DISTRESS [None]
  - PAIN IN EXTREMITY [None]
  - OEDEMA PERIPHERAL [None]
  - CHEST DISCOMFORT [None]
  - POST THROMBOTIC SYNDROME [None]
  - PULMONARY EMBOLISM [None]
  - ANXIETY [None]
  - PANIC ATTACK [None]
  - FEAR OF DISEASE [None]
  - PULMONARY FIBROSIS [None]
  - FEAR OF DEATH [None]
  - CHEST PAIN [None]
  - DEEP VEIN THROMBOSIS [None]
  - GENERAL PHYSICAL HEALTH DETERIORATION [None]
  - DYSPNOEA [None]
